FAERS Safety Report 8464230-4 (Version None)
Quarter: 2012Q2

REPORT INFORMATION
  Report Type: 
  Country: None (occurrence: None)
  Receive Date: 20120625
  Receipt Date: 20120620
  Transmission Date: 20120825
  Serious: Yes (Other)
  Sender: FDA-Public Use
  Company Number: US-ROCHE-1039494

PATIENT
  Sex: Female
  Weight: 57.204 kg

DRUGS (2)
  1. IBUPROFEN [Concomitant]
     Indication: PAIN
     Route: 048
  2. XELODA [Suspect]
     Indication: BREAST CANCER METASTATIC
     Route: 048
     Dates: start: 20111129

REACTIONS (12)
  - FATIGUE [None]
  - HYPOTONIA [None]
  - RASH [None]
  - ARTHRALGIA [None]
  - CONSTIPATION [None]
  - SKIN EXFOLIATION [None]
  - PAIN IN EXTREMITY [None]
  - SKIN FISSURES [None]
  - ERYTHEMA [None]
  - PALMAR-PLANTAR ERYTHRODYSAESTHESIA SYNDROME [None]
  - NAIL DISORDER [None]
  - JOINT SWELLING [None]
